FAERS Safety Report 11253483 (Version 2)
Quarter: 2015Q3

REPORT INFORMATION
  Report Type: Report from Study
  Country: AU (occurrence: None)
  Receive Date: 20150707
  Receipt Date: 20150903
  Transmission Date: 20151125
  Serious: Yes (Hospitalization, Other)
  Sender: FDA-Public Use
  Company Number: KAD201507-002095

PATIENT
  Sex: Female
  Weight: 86 kg

DRUGS (10)
  1. NORFLOXACIN [Concomitant]
     Active Substance: NORFLOXACIN
  2. SPIRONOLACTONE. [Concomitant]
     Active Substance: SPIRONOLACTONE
  3. FRUSEMIDE [Concomitant]
     Active Substance: FUROSEMIDE
  4. ABT-450/RITONAVIR/ABT-267 (OMBITASVIR, PARITAPREVIR, RITONAVIR) [Suspect]
     Active Substance: OMBITASVIR\PARITAPREVIR\RITONAVIR
     Indication: HEPATIC CIRRHOSIS
     Route: 048
     Dates: start: 20150428, end: 20150810
  5. RIBAVIRIN (RIBAVIRIN) [Suspect]
     Active Substance: RIBAVIRIN
     Indication: HEPATIC CIRRHOSIS
     Dosage: ORAL, ONGOING
     Route: 048
     Dates: start: 20150428, end: 20150810
  6. ABT-450/RITONAVIR/ABT-267 (OMBITASVIR, PARITAPREVIR, RITONAVIR) [Suspect]
     Active Substance: OMBITASVIR\PARITAPREVIR\RITONAVIR
     Indication: HEPATITIS C
     Route: 048
     Dates: start: 20150428, end: 20150810
  7. ABT-333 (DASABUVIR) [Suspect]
     Active Substance: DASABUVIR
     Indication: HEPATIC CIRRHOSIS
     Route: 048
     Dates: start: 20150428, end: 20150810
  8. RIBAVIRIN (RIBAVIRIN) [Suspect]
     Active Substance: RIBAVIRIN
     Indication: HEPATITIS C
     Dosage: ORAL, ONGOING
     Route: 048
     Dates: start: 20150428, end: 20150810
  9. ABT-333 (DASABUVIR) [Suspect]
     Active Substance: DASABUVIR
     Indication: HEPATITIS C
     Route: 048
     Dates: start: 20150428, end: 20150810
  10. LACTULOSE. [Concomitant]
     Active Substance: LACTULOSE

REACTIONS (6)
  - Encephalopathy [None]
  - Hepatitis C [None]
  - Hyponatraemia [None]
  - Disease progression [None]
  - Jaundice [None]
  - Hepatic hydrothorax [None]

NARRATIVE: CASE EVENT DATE: 20150507
